FAERS Safety Report 5028281-4 (Version None)
Quarter: 2006Q2

REPORT INFORMATION
  Report Type: 
  Country: None (occurrence: None)
  Receive Date: 20060503
  Receipt Date: 20060123
  Transmission Date: 20061013
  Serious: No
  Sender: FDA-Public Use
  Company Number: FACT0600035

PATIENT
  Age: 59 Year
  Sex: Male
  Weight: 133.8 kg

DRUGS (8)
  1. FACTIVE [Suspect]
     Indication: RESPIRATORY TRACT INFECTION BACTERIAL
     Dosage: 320 MG, QD, ORAL
     Route: 048
     Dates: start: 20060116, end: 20060120
  2. NAPROXEN [Concomitant]
  3. NIACIN [Concomitant]
  4. FUROSEMIDE [Concomitant]
  5. METFORMIN [Concomitant]
  6. POTASSIUM [Concomitant]
  7. ASCORBIC ACID [Concomitant]
  8. ASPIRIN [Concomitant]

REACTIONS (2)
  - PRURITUS GENERALISED [None]
  - RASH [None]
